FAERS Safety Report 24986874 (Version 1)
Quarter: 2025Q1

REPORT INFORMATION
  Report Type: Spontaneous
  Country: IN (occurrence: IN)
  Receive Date: 20250219
  Receipt Date: 20250219
  Transmission Date: 20250409
  Serious: Yes (Other)
  Sender: SANDOZ
  Company Number: IN-SANDOZ-SDZ2023IN076015

PATIENT
  Age: 56 Year
  Sex: Male

DRUGS (3)
  1. MYFORTIC [Suspect]
     Active Substance: MYCOPHENOLATE SODIUM
     Indication: Renal transplant
     Dosage: 360 MG, TID
     Route: 048
  2. TACROLIMUS [Suspect]
     Active Substance: TACROLIMUS
     Indication: Renal transplant
     Dosage: 1 MG, BID
     Route: 048
  3. GANCICLOVIR SODIUM [Concomitant]
     Active Substance: GANCICLOVIR SODIUM
     Indication: Product used for unknown indication
     Dosage: 250 MG,DAILY FOR 2 WEEKS
     Route: 065

REACTIONS (14)
  - Urinary ascites [Unknown]
  - Hydronephrosis [Unknown]
  - Acute kidney injury [Unknown]
  - Cataract [Unknown]
  - Abdominal distension [Unknown]
  - Abdominal pain [Unknown]
  - Laboratory test abnormal [Unknown]
  - Pyrexia [Unknown]
  - Cough [Unknown]
  - Cough [Unknown]
  - Pyrexia [Unknown]
  - Asthenia [Unknown]
  - Decreased appetite [Unknown]
  - Product prescribing error [Unknown]

NARRATIVE: CASE EVENT DATE: 20240112
